FAERS Safety Report 5027929-8 (Version None)
Quarter: 2006Q2

REPORT INFORMATION
  Report Type: 
  Country: None (occurrence: None)
  Receive Date: 20060616
  Receipt Date: 20060612
  Transmission Date: 20061013
  Serious: Yes (Life-Threatening)
  Sender: FDA-Public Use
  Company Number: 2006AC01106

PATIENT
  Age: 55 Year
  Sex: Female

DRUGS (11)
  1. LIDOCAINE [Suspect]
     Indication: ARRHYTHMIA
  2. FLUCONAZOLE [Suspect]
     Route: 042
  3. CYTARABINE [Concomitant]
  4. ETOPOSIDE [Concomitant]
  5. DAUNORUBICIN HCL [Concomitant]
  6. MERCAPTOPURINE [Concomitant]
  7. AMPICILLIN SODIUM SULBATAM SODIUM [Concomitant]
     Indication: BACTERAEMIA
  8. AMPHOTERICIN B [Concomitant]
     Indication: BACTERAEMIA
  9. TOBRAMYCIN [Concomitant]
     Indication: BACTERAEMIA
  10. CEFOPERAZONE SDOIUM SULBACTAM SODIUM [Concomitant]
     Indication: BACTERAEMIA
  11. AMINOPHYLLIN [Concomitant]
     Indication: PNEUMONIA
     Route: 042

REACTIONS (3)
  - DRUG INEFFECTIVE [None]
  - SYNCOPE [None]
  - TORSADE DE POINTES [None]
